FAERS Safety Report 6214879-4 (Version None)
Quarter: 2009Q2

REPORT INFORMATION
  Report Type: 
  Country: None (occurrence: None)
  Receive Date: 20090601
  Receipt Date: 20090311
  Transmission Date: 20091009
  Serious: Yes (Hospitalization)
  Sender: FDA-Public Use
  Company Number: GXBR2009US00757

PATIENT
  Age: 57 Year
  Sex: Female

DRUGS (8)
  1. CYCLOBENZAPRINE HCL [Suspect]
  2. OXYMORPHONE HCL [Suspect]
  3. XANAX [Suspect]
  4. PHENERGAN [Suspect]
  5. TOPAMAX [Suspect]
  6. AMBIEN [Suspect]
  7. ZANAFLEX [Suspect]
  8. DIFLUCAN [Suspect]

REACTIONS (1)
  - MULTIPLE DRUG OVERDOSE ACCIDENTAL [None]
